FAERS Safety Report 24605133 (Version 1)
Quarter: 2024Q4

REPORT INFORMATION
  Report Type: Spontaneous
  Country: US (occurrence: US)
  Receive Date: 20241111
  Receipt Date: 20241111
  Transmission Date: 20250114
  Serious: No
  Sender: PARATEK PHARMACEUTICALS
  Company Number: US-PARATEK PHARMACEUTICALS, INC.-2023PTK00566

PATIENT
  Age: 46 Year
  Sex: Female

DRUGS (4)
  1. NUZYRA [Suspect]
     Active Substance: OMADACYCLINE
     Indication: Skin infection
     Dosage: LOADING DOSE
     Route: 048
     Dates: start: 20231026, end: 20231027
  2. UNSPECIFIED ATHLETIC FOOT POWDER [Concomitant]
     Dosage: UNK
     Dates: start: 20230921
  3. CLOTRIMAZOLE [Concomitant]
     Active Substance: CLOTRIMAZOLE
     Dosage: UNK
     Dates: start: 20230921
  4. FLUCONAZOLE [Concomitant]
     Active Substance: FLUCONAZOLE
     Dosage: UNK, TWICE
     Dates: start: 20231013

REACTIONS (7)
  - Blister [Unknown]
  - Papule [Unknown]
  - Macule [Unknown]
  - Dermatitis allergic [Unknown]
  - Overgrowth fungal [Unknown]
  - Condition aggravated [Unknown]
  - Drug hypersensitivity [Unknown]

NARRATIVE: CASE EVENT DATE: 20231001
